FAERS Safety Report 5159734-6 (Version None)
Quarter: 2006Q4

REPORT INFORMATION
  Report Type: 
  Country: None (occurrence: None)
  Receive Date: 20061129
  Receipt Date: 20051019
  Transmission Date: 20070319
  Serious: No
  Sender: FDA-Public Use
  Company Number: US-GLAXOSMITHKLINE-A0578791A

PATIENT
  Sex: Female

DRUGS (3)
  1. WELLBUTRIN SR [Suspect]
     Indication: MENOPAUSAL SYMPTOMS
     Route: 048
  2. PAXIL [Suspect]
     Indication: DEPRESSION
     Route: 048
     Dates: start: 19960101
  3. SPIRONOLACTONE [Concomitant]

REACTIONS (5)
  - ARTHRALGIA [None]
  - MUSCULOSKELETAL PAIN [None]
  - PHOTOPSIA [None]
  - SEXUAL DYSFUNCTION [None]
  - THERAPEUTIC RESPONSE UNEXPECTED [None]
